FAERS Safety Report 24987475 (Version 1)
Quarter: 2025Q1

REPORT INFORMATION
  Report Type: Report from Study
  Country: US (occurrence: US)
  Receive Date: 20250219
  Receipt Date: 20250219
  Transmission Date: 20250408
  Serious: Yes (Death)
  Sender: IOVANCE BIOTHERAPEUTICS MANUFACTURING LLC
  Company Number: US-CLINIGEN-US-CLI-2023-000740

PATIENT
  Age: 70 Year
  Sex: Male

DRUGS (8)
  1. ALDESLEUKIN [Suspect]
     Active Substance: ALDESLEUKIN
     Indication: Lung adenocarcinoma
     Route: 065
     Dates: start: 20230517, end: 20230520
  2. ALDESLEUKIN [Suspect]
     Active Substance: ALDESLEUKIN
  3. ALDESLEUKIN [Suspect]
     Active Substance: ALDESLEUKIN
  4. LYMPHOCYTES [Suspect]
     Active Substance: LYMPHOCYTES
     Indication: Lung adenocarcinoma
     Route: 065
     Dates: start: 20230517, end: 20230517
  5. FLUDARABINE [Suspect]
     Active Substance: FLUDARABINE PHOSPHATE
     Indication: Lung adenocarcinoma
     Route: 065
     Dates: start: 20230512, end: 20230514
  6. CYCLOPHOSPHAMIDE [Suspect]
     Active Substance: CYCLOPHOSPHAMIDE
     Indication: Lung adenocarcinoma
     Route: 065
     Dates: start: 20230512, end: 20230513
  7. CEFEPIME [Concomitant]
     Active Substance: CEFEPIME HYDROCHLORIDE
     Indication: Hypoxia
     Route: 065
     Dates: start: 20230514
  8. FLAGYL [Concomitant]
     Active Substance: METRONIDAZOLE\METRONIDAZOLE HYDROCHLORIDE
     Indication: Hypoxia
     Route: 065
     Dates: start: 20230514

REACTIONS (1)
  - Pneumonia [Fatal]

NARRATIVE: CASE EVENT DATE: 20230614
